FAERS Safety Report 9783634 (Version 1)
Quarter: 2013Q4

REPORT INFORMATION
  Report Type: Spontaneous
  Country: AU (occurrence: None)
  Receive Date: 20131223
  Receipt Date: 20131223
  Transmission Date: 20140711
  Serious: Yes (Other)
  Sender: FDA-Public Use
  Company Number: 2013000355

PATIENT
  Sex: Female

DRUGS (3)
  1. ACEON [Suspect]
     Indication: PRODUCT USED FOR UNKNOWN INDICATION
  2. PREMARIN (ESTROGENS CONJUGATED) [Concomitant]
  3. PROVERA (MEDROXYPROGESTERONE ACETATE) [Concomitant]

REACTIONS (5)
  - Chest pain [None]
  - Dyspnoea [None]
  - Paraesthesia [None]
  - Angioedema [None]
  - Tongue oedema [None]
